FAERS Safety Report 10027530 (Version 1)
Quarter: 2014Q1

REPORT INFORMATION
  Report Type: Spontaneous
  Country: SZ (occurrence: None)
  Receive Date: 20140318
  Receipt Date: 20140318
  Transmission Date: 20141002
  Serious: Yes (Hospitalization, Other)
  Sender: FDA-Public Use
  Company Number: 2014030032

PATIENT
  Age: 79 Year
  Sex: Male

DRUGS (8)
  1. TOREM (TORASEMIDE) [Suspect]
     Indication: OEDEMA PERIPHERAL
     Dates: start: 20130528, end: 20130708
  2. TOREM (TORASEMIDE) [Suspect]
     Indication: PAIN
     Dates: start: 20130528, end: 20130708
  3. CLOPIXOL [Suspect]
     Indication: SCHIZOPHRENIA, PARANOID TYPE
     Dates: start: 20130528, end: 20130603
  4. CLOPIXOL [Suspect]
     Indication: BIPOLAR I DISORDER
     Dates: start: 20130528, end: 20130603
  5. QUILONORM (LITHIUM) [Concomitant]
  6. RISPERDAL [Suspect]
     Indication: SCHIZOPHRENIA, PARANOID TYPE
     Dates: start: 20130528, end: 20130603
  7. RISPERDAL [Suspect]
     Indication: BIPOLAR I DISORDER
     Dates: start: 20130528, end: 20130603
  8. NOVALGIN (METAMIZOLE SODIUM) [Suspect]
     Dates: start: 20130525, end: 20130603

REACTIONS (4)
  - Fall [None]
  - Femur fracture [None]
  - Procedural pain [None]
  - Post procedural oedema [None]
